FAERS Safety Report 8339093-8 (Version None)
Quarter: 2012Q2

REPORT INFORMATION
  Report Type: 
  Country: None (occurrence: None)
  Receive Date: 20120507
  Receipt Date: 20120502
  Transmission Date: 20120825
  Serious: No
  Sender: FDA-Public Use
  Company Number: US-PFIZER INC-2012108273

PATIENT
  Sex: Female
  Weight: 68 kg

DRUGS (4)
  1. ESTRING [Suspect]
     Indication: VULVOVAGINAL DRYNESS
     Dosage: 2 MG, UNK
     Route: 067
     Dates: start: 20120430, end: 20120501
  2. LOVAZA [Concomitant]
     Indication: SUPPLEMENTATION THERAPY
     Dosage: 1200 MG, UNK
  3. LEVOTHYROXINE [Concomitant]
     Indication: HYPOTHYROIDISM
     Dosage: UNK
  4. CYCLOSPORINE [Concomitant]
     Indication: DRY EYE
     Dosage: UNK

REACTIONS (2)
  - VULVOVAGINAL PAIN [None]
  - VULVOVAGINAL DISCOMFORT [None]
